FAERS Safety Report 7564573-2 (Version None)
Quarter: 2011Q2

REPORT INFORMATION
  Report Type: 
  Country: None (occurrence: None)
  Receive Date: 20110622
  Receipt Date: 20100607
  Transmission Date: 20111010
  Serious: Yes (Other)
  Sender: FDA-Public Use
  Company Number: US-MYLANLABS-2010S1010094

PATIENT
  Age: 15 Year
  Sex: Male

DRUGS (8)
  1. CLOZAPINE [Suspect]
     Route: 048
     Dates: start: 20080101, end: 20100603
  2. OXYBUTYNIN HYDROCHLORIDE [Concomitant]
  3. DEXADRIN [Concomitant]
  4. LAMICTAL [Concomitant]
  5. CLOZAPINE [Suspect]
     Indication: MOOD DISORDER DUE TO A GENERAL MEDICAL CONDITION
     Route: 048
     Dates: start: 20080101, end: 20100603
  6. FLUOXETINE HCL [Concomitant]
  7. DESMOPRESSIN [Concomitant]
  8. SINGULAIR [Concomitant]

REACTIONS (1)
  - GRANULOCYTOPENIA [None]
